FAERS Safety Report 7729398-3 (Version None)
Quarter: 2011Q3

REPORT INFORMATION
  Report Type: 
  Country: None (occurrence: None)
  Receive Date: 20110831
  Receipt Date: 20110831
  Transmission Date: 20111222
  Serious: Yes (Hospitalization)
  Sender: FDA-Public Use
  Company Number: None

PATIENT
  Sex: Female
  Weight: 62.1 kg

DRUGS (2)
  1. DAUNORUBICIN HCL [Suspect]
     Dosage: 300 MG
     Dates: end: 20110813
  2. CYTARABINE [Suspect]
     Dosage: 1211MG
     Dates: end: 20110818

REACTIONS (6)
  - TOXICITY TO VARIOUS AGENTS [None]
  - CARDIOMYOPATHY [None]
  - MYOCARDIAL ISCHAEMIA [None]
  - ARRHYTHMIA [None]
  - ELECTROCARDIOGRAM QT PROLONGED [None]
  - VIRAL INFECTION [None]
